FAERS Safety Report 5619915-1 (Version None)
Quarter: 2008Q1

REPORT INFORMATION
  Report Type: 
  Country: None (occurrence: None)
  Receive Date: 20080208
  Receipt Date: 20070813
  Transmission Date: 20080703
  Serious: No
  Sender: FDA-Public Use
  Company Number: US-ABBOTT-07P-163-0377900-00

PATIENT
  Age: 75 Year
  Sex: Female
  Weight: 76.726 kg

DRUGS (8)
  1. VICODIN [Suspect]
     Indication: BACK PAIN
  2. TYLENOL (CAPLET) [Suspect]
     Indication: PAIN
     Route: 048
     Dates: start: 20070201
  3. EXTRA STRENGTH TYLENOL [Suspect]
     Indication: PAIN
     Route: 048
  4. DYAZIDE [Concomitant]
     Indication: DRUG USE FOR UNKNOWN INDICATION
  5. LEVOTHYROXINE SODIUM [Concomitant]
     Indication: THYROID DISORDER
  6. LORATADINE [Concomitant]
     Indication: MULTIPLE ALLERGIES
  7. ASPIRIN [Concomitant]
     Indication: DRUG USE FOR UNKNOWN INDICATION
  8. HYDROCHLOROTHIAZIDE [Concomitant]
     Indication: BLOOD PRESSURE

REACTIONS (3)
  - BLOOD PRESSURE INCREASED [None]
  - DRUG ADMINISTRATION ERROR [None]
  - INCORRECT DRUG ADMINISTRATION DURATION [None]
